FAERS Safety Report 10221445 (Version 3)
Quarter: 2015Q1

REPORT INFORMATION
  Report Type: Report from Study
  Country: JP (occurrence: JP)
  Receive Date: 20140606
  Receipt Date: 20150305
  Transmission Date: 20150720
  Serious: Yes (Life-Threatening, Hospitalization)
  Sender: FDA-Public Use
  Company Number: JP-PFIZER INC-2013369224

PATIENT
  Age: 54 Year
  Sex: Female
  Weight: 54.8 kg

DRUGS (16)
  1. KYTRIL [Concomitant]
     Active Substance: GRANISETRON HYDROCHLORIDE
     Dosage: 1 MG, AS NEEDED
     Route: 048
     Dates: start: 20130203, end: 20130424
  2. PIPERACILLIN SODIUM [Concomitant]
     Active Substance: PIPERACILLIN SODIUM
     Dosage: 2 G, 2X/DAY
     Route: 042
     Dates: start: 20130208, end: 20130220
  3. XALKORI [Suspect]
     Active Substance: CRIZOTINIB
     Indication: NON-SMALL CELL LUNG CANCER
     Dosage: 250 MG, 2X/DAY
     Route: 048
     Dates: start: 20130131, end: 20130226
  4. FUROSEMIDE. [Concomitant]
     Active Substance: FUROSEMIDE
     Dosage: 20 MG, 1X/DAY
     Route: 048
     Dates: start: 20130212, end: 20130225
  5. TERPERAN [Concomitant]
     Active Substance: METOCLOPRAMIDE HYDROCHLORIDE
     Dosage: 5 MG, 3X/DAY
     Route: 048
     Dates: start: 20130203, end: 20130225
  6. HOKUNALIN [Concomitant]
     Active Substance: TULOBUTEROL
     Indication: UPPER RESPIRATORY TRACT INFLAMMATION
     Dosage: 2 MG, 1X/DAY
     Route: 062
     Dates: start: 20130210, end: 20130313
  7. TAMIFLU [Concomitant]
     Active Substance: OSELTAMIVIR PHOSPHATE
     Dosage: 75 MG, 1X/DAY
     Route: 048
     Dates: start: 20130210, end: 20130216
  8. BROCIN-CODEINE [Concomitant]
     Dosage: 2 ML, AS NEEDED
     Route: 048
     Dates: start: 20130131
  9. DEXTROSE. [Concomitant]
     Active Substance: DEXTROSE
     Dosage: 20 ML, 1X/DAY
     Dates: start: 20130205, end: 20130225
  10. VEEN D [Concomitant]
     Active Substance: CALCIUM CHLORIDE\DEXTROSE\POTASSIUM CHLORIDE\SODIUM ACETATE\SODIUM CHLORIDE
     Dosage: 500 ML, 1X/DAY
     Dates: start: 20130208, end: 20130225
  11. HUSTAZOL [Concomitant]
     Active Substance: CLOPERASTINE
     Dosage: 10 MG, 3X/DAY
     Route: 048
     Dates: start: 20130131, end: 20130225
  12. TEPRENONE [Concomitant]
     Active Substance: TEPRENONE
     Dosage: 50 MG, 3X/DAY
     Route: 048
     Dates: start: 20130131, end: 20130225
  13. NAUZELIN [Concomitant]
     Active Substance: DOMPERIDONE
     Dosage: 10 MG, AS NEEDED
     Route: 048
     Dates: start: 20130131, end: 20130424
  14. ETODOLAC. [Concomitant]
     Active Substance: ETODOLAC
     Dosage: 200 MG, 2X/DAY
     Route: 048
     Dates: start: 20130131, end: 20130225
  15. MAGMITT [Concomitant]
     Active Substance: MAGNESIUM OXIDE
     Dosage: 330 MG, AS NEEDED
     Route: 048
     Dates: start: 20130131, end: 20130424
  16. SOLACET F [Concomitant]
     Dosage: 500 ML, 1X/DAY
     Dates: start: 20130131, end: 20130225

REACTIONS (2)
  - Interstitial lung disease [Recovered/Resolved]
  - Bronchitis [Recovering/Resolving]

NARRATIVE: CASE EVENT DATE: 20130220
